FAERS Safety Report 9831250 (Version 1)
Quarter: 2014Q1

REPORT INFORMATION
  Report Type: Report from Study
  Country: US (occurrence: US)
  Receive Date: 20140121
  Receipt Date: 20140121
  Transmission Date: 20141002
  Serious: Yes (Other)
  Sender: FDA-Public Use
  Company Number: US-ROCHE-1335584

PATIENT
  Age: 45 Year
  Sex: Male
  Weight: 77.18 kg

DRUGS (1)
  1. NUTROPIN [Suspect]
     Indication: HYPOPITUITARISM
     Route: 058

REACTIONS (3)
  - Joint range of motion decreased [Unknown]
  - Oedema peripheral [Unknown]
  - Glycosylated haemoglobin increased [Unknown]
